FAERS Safety Report 18978747 (Version 2)
Quarter: 2021Q2

REPORT INFORMATION
  Report Type: Report from Study
  Country: US (occurrence: US)
  Receive Date: 20210308
  Receipt Date: 20210415
  Transmission Date: 20210717
  Serious: No
  Sender: FDA-Public Use
  Company Number: US-SA-2021SA075694

PATIENT
  Age: 53 Year
  Sex: Female

DRUGS (2)
  1. DUPIXENT [Suspect]
     Active Substance: DUPILUMAB
     Dosage: UNK UNK, QOW
     Route: 058
     Dates: start: 202009
  2. DUPIXENT [Suspect]
     Active Substance: DUPILUMAB
     Indication: NASAL POLYPS
     Dosage: UNK, 1X
     Route: 058

REACTIONS (6)
  - Hordeolum [Unknown]
  - Eye discharge [Unknown]
  - Product use issue [Unknown]
  - Ocular hyperaemia [Unknown]
  - Pain [Unknown]
  - Eyelid boil [Unknown]

NARRATIVE: CASE EVENT DATE: 2020
